FAERS Safety Report 5502135-9 (Version None)
Quarter: 2007Q4

REPORT INFORMATION
  Report Type: 
  Country: None (occurrence: None)
  Receive Date: 20071030
  Receipt Date: 20071022
  Transmission Date: 20080405
  Serious: Yes (Hospitalization)
  Sender: FDA-Public Use
  Company Number: US-ASTRAZENECA-2007UW24833

PATIENT
  Age: 80 Year
  Sex: Female
  Weight: 46.8 kg

DRUGS (2)
  1. NOLVADEX [Suspect]
     Indication: BREAST CANCER
     Route: 048
     Dates: start: 20041108, end: 20071014
  2. PLACEBO [Suspect]
     Indication: BREAST CANCER
     Route: 048
     Dates: start: 20041108, end: 20071014

REACTIONS (1)
  - DYSPNOEA [None]
